FAERS Safety Report 8536056-4 (Version None)
Quarter: 2012Q3

REPORT INFORMATION
  Report Type: 
  Country: None (occurrence: None)
  Receive Date: 20120718
  Receipt Date: 20120718
  Transmission Date: 20120928
  Serious: Yes (Hospitalization)
  Sender: FDA-Public Use
  Company Number: None

PATIENT
  Sex: Female
  Weight: 59.8 kg

DRUGS (2)
  1. CISPLATIN [Suspect]
     Dosage: 70 MG
  2. ETOPOSIDE [Suspect]
     Dosage: 140 MG

REACTIONS (1)
  - PLATELET COUNT DECREASED [None]
